FAERS Safety Report 10438832 (Version 1)
Quarter: 2014Q3

REPORT INFORMATION
  Report Type: Spontaneous
  Country: AU (occurrence: AU)
  Receive Date: 20140908
  Receipt Date: 20140908
  Transmission Date: 20150326
  Serious: Yes (Other)
  Sender: FDA-Public Use
  Company Number: PHHY2014AU109714

PATIENT
  Age: 62 Year
  Sex: Male

DRUGS (4)
  1. NILUTAMIDE [Interacting]
     Active Substance: NILUTAMIDE
  2. MYCOPHENOLATE MOFETIL. [Concomitant]
     Active Substance: MYCOPHENOLATE MOFETIL
     Indication: IMMUNOSUPPRESSION
     Dosage: UNK
  3. TACROLIMUS. [Suspect]
     Active Substance: TACROLIMUS
     Indication: IMMUNOSUPPRESSION
     Dosage: UNK
  4. PREDNISOLONE. [Concomitant]
     Active Substance: PREDNISOLONE
     Indication: IMMUNOSUPPRESSION
     Dosage: UNK

REACTIONS (6)
  - Hyperglycaemia [Recovered/Resolved]
  - Tremor [Recovered/Resolved]
  - Drug interaction [Unknown]
  - Renal impairment [Recovered/Resolved]
  - Blood creatinine increased [Recovered/Resolved]
  - Drug level increased [Recovered/Resolved]
